FAERS Safety Report 6361380-3 (Version None)
Quarter: 2009Q3

REPORT INFORMATION
  Report Type: 
  Country: None (occurrence: None)
  Receive Date: 20090916
  Receipt Date: 20090916
  Transmission Date: 20100115
  Serious: No
  Sender: FDA-Public Use
  Company Number: None

PATIENT
  Age: 79 Year
  Sex: Female
  Weight: 44.4525 kg

DRUGS (2)
  1. AMOXICILLIN [Suspect]
  2. FEXOFENADINE [Suspect]

REACTIONS (3)
  - LIP SWELLING [None]
  - RASH GENERALISED [None]
  - SWELLING FACE [None]
